FAERS Safety Report 25185167 (Version 1)
Quarter: 2025Q2

REPORT INFORMATION
  Report Type: Spontaneous
  Country: US (occurrence: US)
  Receive Date: 20250410
  Receipt Date: 20250410
  Transmission Date: 20250716
  Serious: Yes (Hospitalization, Other)
  Sender: AMGEN
  Company Number: US-AMGEN-USASP2025064723

PATIENT
  Age: 62 Year
  Sex: Female

DRUGS (3)
  1. PREDNISONE [Suspect]
     Active Substance: PREDNISONE
     Indication: Neurosarcoidosis
     Route: 065
  2. PREDNISONE [Suspect]
     Active Substance: PREDNISONE
     Route: 065
  3. INFLIXIMAB [Suspect]
     Active Substance: INFLIXIMAB
     Indication: Neurosarcoidosis
     Route: 065

REACTIONS (7)
  - Neurosarcoidosis [Unknown]
  - Arterial occlusive disease [Unknown]
  - Cerebral artery stenosis [Unknown]
  - Vasculitis [Unknown]
  - Electrocardiogram T wave inversion [Unknown]
  - Troponin increased [Unknown]
  - Off label use [Unknown]
